FAERS Safety Report 15117309 (Version 1)
Quarter: 2018Q3

REPORT INFORMATION
  Report Type: Spontaneous
  Country: IN (occurrence: IN)
  Receive Date: 20180706
  Receipt Date: 20180706
  Transmission Date: 20181010
  Serious: Yes (Other)
  Sender: FDA-Public Use
  Company Number: IN-MYLANLABS-2018M1047809

PATIENT
  Age: 62 Year
  Sex: Male

DRUGS (6)
  1. HYALURONIDASE [Suspect]
     Active Substance: HYALURONIDASE
     Indication: AKINESIA
  2. BUPIVACAINE. [Suspect]
     Active Substance: BUPIVACAINE
     Indication: ANAESTHESIA
     Dosage: MIXTURE OF LIDOCAINE, BUPIVACAINE AND HYALURONIDASE (TOTAL VOLUME 3 ML)
     Route: 065
  3. LIDOCAINE. [Suspect]
     Active Substance: LIDOCAINE
     Indication: ANAESTHESIA
     Dosage: MIXTURE OF LIDOCAINE, BUPIVACAINE AND HYALURONIDASE (TOTAL VOLUME 3 ML)
     Route: 065
  4. HYALURONIDASE [Suspect]
     Active Substance: HYALURONIDASE
     Indication: ANAESTHESIA
     Dosage: MIXTURE OF LIDOCAINE, BUPIVACAINE AND HYALURONIDASE (TOTAL VOLUME 3 ML)
     Route: 065
  5. LIDOCAINE. [Suspect]
     Active Substance: LIDOCAINE
     Indication: AKINESIA
  6. BUPIVACAINE. [Suspect]
     Active Substance: BUPIVACAINE
     Indication: AKINESIA

REACTIONS (4)
  - Conjunctival haemorrhage [Recovering/Resolving]
  - Visual acuity reduced [Recovering/Resolving]
  - Corneal oedema [Recovering/Resolving]
  - Retinal artery occlusion [Recovering/Resolving]
